FAERS Safety Report 6837437-7 (Version None)
Quarter: 2010Q3

REPORT INFORMATION
  Report Type: 
  Country: None (occurrence: None)
  Receive Date: 20100713
  Receipt Date: 20070514
  Transmission Date: 20110219
  Serious: No
  Sender: FDA-Public Use
  Company Number: US-PFIZER INC-2007039114

PATIENT
  Age: 30 Year
  Sex: Male

DRUGS (3)
  1. CHANTIX [Suspect]
     Indication: SMOKING CESSATION THERAPY
  2. TEGRETOL [Concomitant]
  3. IMIPRAMINE [Concomitant]

REACTIONS (1)
  - DRUG WITHDRAWAL SYNDROME [None]
